FAERS Safety Report 5116216-5 (Version None)
Quarter: 2006Q3

REPORT INFORMATION
  Report Type: 
  Country: None (occurrence: None)
  Receive Date: 20060927
  Receipt Date: 20060621
  Transmission Date: 20061208
  Serious: Yes (Hospitalization)
  Sender: FDA-Public Use
  Company Number: JP-MERCK-0606USA05695

PATIENT
  Age: 75 Year
  Sex: Male

DRUGS (8)
  1. STROMECTOL [Suspect]
     Indication: ACARODERMATITIS
     Route: 048
     Dates: start: 20060616
  2. ALLEGRA [Concomitant]
     Indication: ACARODERMATITIS
     Route: 048
     Dates: start: 20060616, end: 20060620
  3. BASEN [Concomitant]
     Route: 048
     Dates: start: 20050928
  4. SYMMETREL [Concomitant]
     Indication: PARKINSON'S DISEASE
     Route: 048
     Dates: start: 20060419
  5. PROCYLIN [Concomitant]
     Indication: ARTERIOSCLEROSIS OBLITERANS
     Route: 048
     Dates: start: 20051205
  6. ASTAT [Concomitant]
     Route: 061
  7. MYSER [Concomitant]
     Route: 061
  8. EURAX-H [Concomitant]
     Route: 061

REACTIONS (2)
  - CARDIOGENIC SHOCK [None]
  - DEPRESSED LEVEL OF CONSCIOUSNESS [None]
